FAERS Safety Report 10855795 (Version 2)
Quarter: 2015Q2

REPORT INFORMATION
  Report Type: Spontaneous
  Country: US (occurrence: US)
  Receive Date: 20150223
  Receipt Date: 20150513
  Transmission Date: 20150821
  Serious: Yes (Other)
  Sender: FDA-Public Use
  Company Number: PHHY2015US017472

PATIENT
  Age: 30 Year
  Sex: Female

DRUGS (1)
  1. LEVOFLOXACIN. [Suspect]
     Active Substance: LEVOFLOXACIN
     Indication: PRODUCT USED FOR UNKNOWN INDICATION
     Route: 065

REACTIONS (5)
  - Stevens-Johnson syndrome [Unknown]
  - Hepatic failure [Recovered/Resolved]
  - Vanishing bile duct syndrome [Recovered/Resolved]
  - Vaginal haemorrhage [Unknown]
  - Jaundice [Recovered/Resolved]
